FAERS Safety Report 7123704-9 (Version None)
Quarter: 2010Q4

REPORT INFORMATION
  Report Type: 
  Country: None (occurrence: None)
  Receive Date: 20101125
  Receipt Date: 20101112
  Transmission Date: 20110411
  Serious: Yes (Hospitalization)
  Sender: FDA-Public Use
  Company Number: PHHO2010US17469

PATIENT
  Sex: Female
  Weight: 68.027 kg

DRUGS (1)
  1. CGS 20267 T30748+TAB [Suspect]
     Indication: UTERINE LEIOMYOSARCOMA
     Dosage: 2.5 MG, QD
     Route: 048
     Dates: start: 20101028

REACTIONS (1)
  - HAEMATOCHEZIA [None]
